FAERS Safety Report 9733073 (Version 3)
Quarter: 2013Q4

REPORT INFORMATION
  Report Type: Spontaneous
  Country: IT (occurrence: IT)
  Receive Date: 20131205
  Receipt Date: 20131217
  Transmission Date: 20140711
  Serious: Yes (Other)
  Sender: FDA-Public Use
  Company Number: IT-PFIZER INC-2013345593

PATIENT
  Age: 34 Year
  Sex: Female

DRUGS (2)
  1. CISPLATIN [Suspect]
     Indication: LUNG NEOPLASM MALIGNANT
     Dosage: 120 MG, CYCLIC
     Route: 042
     Dates: start: 20131106
  2. ALIMTA [Suspect]
     Indication: LUNG NEOPLASM MALIGNANT
     Dosage: 370 MG, CYCLIC
     Route: 042
     Dates: start: 20131106

REACTIONS (1)
  - Constipation [Recovering/Resolving]
